FAERS Safety Report 21766664 (Version 2)
Quarter: 2023Q1

REPORT INFORMATION
  Report Type: Spontaneous
  Country: US (occurrence: US)
  Receive Date: 20221222
  Receipt Date: 20230106
  Transmission Date: 20230417
  Serious: Yes (Hospitalization)
  Sender: FDA-Public Use
  Company Number: US-TEVA-2022-US-2837396

PATIENT
  Age: 25 Year
  Sex: Male

DRUGS (1)
  1. LAMOTRIGINE [Suspect]
     Active Substance: LAMOTRIGINE
     Indication: Bipolar II disorder
     Route: 065

REACTIONS (2)
  - Tubulointerstitial nephritis [Recovered/Resolved]
  - Oliguria [Recovered/Resolved]
